FAERS Safety Report 12061984 (Version 1)
Quarter: 2016Q1

REPORT INFORMATION
  Report Type: Spontaneous
  Country: US (occurrence: US)
  Receive Date: 20160210
  Receipt Date: 20160210
  Transmission Date: 20160526
  Serious: No
  Sender: FDA-Public Use
  Company Number: US-ALLERGAN-1506934US

PATIENT
  Sex: Female

DRUGS (3)
  1. BOTOX COSMETIC [Suspect]
     Active Substance: ONABOTULINUMTOXINA
     Indication: SKIN WRINKLING
     Dosage: 5 UNITS, SINGLE
     Route: 030
     Dates: start: 20150401, end: 20150401
  2. BOTOX COSMETIC [Suspect]
     Active Substance: ONABOTULINUMTOXINA
     Indication: SKIN WRINKLING
  3. BOTOX COSMETIC [Suspect]
     Active Substance: ONABOTULINUMTOXINA
     Indication: SKIN WRINKLING
     Dosage: 40 UNITS, SINGLE
     Route: 030
     Dates: start: 20150320, end: 20150320

REACTIONS (6)
  - Headache [Recovered/Resolved]
  - Vision blurred [Recovered/Resolved]
  - Paraesthesia [Not Recovered/Not Resolved]
  - Eyelid sensory disorder [Recovered/Resolved]
  - Drug ineffective [Recovered/Resolved]
  - Injection site hypersensitivity [Not Recovered/Not Resolved]
